FAERS Safety Report 18792110 (Version 1)
Quarter: 2021Q1

REPORT INFORMATION
  Report Type: Other
  Country: US (occurrence: US)
  Receive Date: 20210127
  Receipt Date: 20210127
  Transmission Date: 20210419
  Serious: Yes (Hospitalization, Other)
  Sender: FDA-Public Use
  Company Number: US-INTERCEPT-PM2021000170

PATIENT
  Sex: Female

DRUGS (1)
  1. OCALIVA [Suspect]
     Active Substance: OBETICHOLIC ACID
     Indication: PRIMARY BILIARY CHOLANGITIS
     Dosage: 5 MILLIGRAM, QD
     Route: 048
     Dates: start: 202001

REACTIONS (10)
  - Fatigue [Recovering/Resolving]
  - Unevaluable event [Recovering/Resolving]
  - Memory impairment [Recovering/Resolving]
  - Contusion [Recovering/Resolving]
  - Autoimmune colitis [Recovering/Resolving]
  - Pyrexia [Recovering/Resolving]
  - Product dose omission issue [Recovered/Resolved]
  - Ageusia [Recovering/Resolving]
  - Anosmia [Recovering/Resolving]
  - Dehydration [Recovering/Resolving]

NARRATIVE: CASE EVENT DATE: 2020
